FAERS Safety Report 9409669 (Version 1)
Quarter: 2013Q2

REPORT INFORMATION
  Report Type: Spontaneous
  Country: US (occurrence: None)
  Receive Date: 20130605
  Receipt Date: 20130605
  Transmission Date: 20140414
  Serious: Yes (Hospitalization, Other)
  Sender: FDA-Public Use
  Company Number: 2013P1006605

PATIENT
  Age: 65 Year
  Sex: Male

DRUGS (10)
  1. INFUMORPH [Suspect]
     Route: 037
  2. INFUMORPH [Suspect]
     Indication: POST LAMINECTOMY SYNDROME
     Route: 037
  3. CLONIDINE [Suspect]
     Indication: POST LAMINECTOMY SYNDROME
     Route: 037
  4. CLONIDINE [Suspect]
     Route: 037
  5. OXYCODONE [Concomitant]
  6. CLONAZEPAM [Concomitant]
  7. EFFEXOR [Concomitant]
  8. AMBIEN [Concomitant]
  9. LOVASTATIN [Concomitant]
  10. LISINOPRIL [Concomitant]

REACTIONS (5)
  - Agitation [None]
  - Pain [None]
  - Diarrhoea [None]
  - Nausea [None]
  - Vomiting [None]
